FAERS Safety Report 16225720 (Version 1)
Quarter: 2019Q2

REPORT INFORMATION
  Report Type: Spontaneous
  Country: AU (occurrence: AU)
  Receive Date: 20190422
  Receipt Date: 20190422
  Transmission Date: 20190711
  Serious: Yes (Hospitalization, Other)
  Sender: FDA-Public Use
  Company Number: AU-BRISTOL-MYERS SQUIBB COMPANY-BMS-2019-036912

PATIENT
  Age: 53 Year
  Sex: Male
  Weight: 42 kg

DRUGS (1)
  1. HYDREA [Suspect]
     Active Substance: HYDROXYUREA
     Indication: POLYCYTHAEMIA VERA
     Dosage: 500 MILLIGRAM, QD
     Route: 048
     Dates: start: 2018

REACTIONS (1)
  - Hospitalisation [Unknown]
